FAERS Safety Report 14673553 (Version 1)
Quarter: 2018Q1

REPORT INFORMATION
  Report Type: Spontaneous
  Country: US (occurrence: US)
  Receive Date: 20180322
  Receipt Date: 20180322
  Transmission Date: 20180509
  Serious: No
  Sender: FDA-Public Use
  Company Number: None

PATIENT
  Sex: Female

DRUGS (4)
  1. TRAVOPROST. [Suspect]
     Active Substance: TRAVOPROST
  2. LATANOPROST. [Concomitant]
     Active Substance: LATANOPROST
  3. TIMOLOL MALEATE 0.25% SOLUTION [Concomitant]
  4. TRAVATAN [Suspect]
     Active Substance: TRAVOPROST

REACTIONS (2)
  - Burning sensation [None]
  - Erythema [None]
